FAERS Safety Report 6103290-2 (Version None)
Quarter: 2009Q1

REPORT INFORMATION
  Report Type: 
  Country: None (occurrence: None)
  Receive Date: 20090305
  Receipt Date: 20090226
  Transmission Date: 20090719
  Serious: Yes (Death, Life-Threatening, Other)
  Sender: FDA-Public Use
  Company Number: ES-BAYER-200828064GPV

PATIENT
  Age: 58 Year
  Sex: Male
  Weight: 60 kg

DRUGS (20)
  1. ZEVALIN [Suspect]
     Indication: B-CELL LYMPHOMA
     Dosage: TOTAL DAILY DOSE: 24 MCI
     Route: 042
     Dates: start: 20080711, end: 20080711
  2. YTRACIS [Suspect]
     Indication: B-CELL LYMPHOMA
     Dosage: TOTAL DAILY DOSE: 24 MCI
     Route: 042
     Dates: start: 20080711, end: 20080711
  3. RITUXIMAB [Suspect]
     Indication: B-CELL LYMPHOMA
     Route: 042
     Dates: start: 20080711, end: 20080711
  4. RITUXIMAB [Suspect]
     Route: 042
     Dates: start: 20080704, end: 20080704
  5. FLUDARABINE PHOSPHATE [Suspect]
     Indication: B-CELL LYMPHOMA
     Route: 042
  6. MELPHALAN [Suspect]
     Indication: B-CELL LYMPHOMA
     Route: 042
  7. FRAXIPARINE [Concomitant]
     Indication: THROMBOSIS PROPHYLAXIS
     Route: 058
     Dates: start: 20080915, end: 20081001
  8. OMEPRAZOLE [Concomitant]
     Indication: PROPHYLAXIS AGAINST GASTROINTESTINAL ULCER
     Route: 042
     Dates: start: 20080717, end: 20081001
  9. GANCICLOVIR [Concomitant]
     Indication: CYTOMEGALOVIRUS COLITIS
     Route: 042
     Dates: start: 20080917, end: 20081001
  10. AMBISOME [Concomitant]
     Indication: ASPERGILLOSIS
     Route: 042
     Dates: start: 20081001, end: 20081001
  11. PIPERACILLIN AND TAZOBACTAM [Concomitant]
     Indication: SEPSIS
     Route: 042
     Dates: start: 20081001, end: 20081001
  12. TETRACICLINE [Concomitant]
     Indication: SEPSIS
     Route: 042
     Dates: start: 20081001, end: 20081001
  13. NEUPOGEN [Concomitant]
     Indication: NEUTROPENIA
     Route: 058
     Dates: start: 20080928, end: 20081001
  14. BUDESONIDE [Concomitant]
     Indication: GRAFT VERSUS HOST DISEASE
     Route: 048
     Dates: start: 20080828, end: 20081001
  15. TRIMETHOPRIM + SULFAMETHOXAZOLE [Concomitant]
     Indication: ANTIFUNGAL PROPHYLAXIS
     Route: 048
     Dates: start: 20080818, end: 20081001
  16. TACROLIMUS [Concomitant]
     Indication: GRAFT VERSUS HOST DISEASE
     Route: 048
     Dates: start: 20080926, end: 20081001
  17. CYCLOSPORINE [Concomitant]
     Indication: PROPHYLAXIS AGAINST GRAFT VERSUS HOST DISEASE
     Route: 048
     Dates: start: 20080731, end: 20080914
  18. FLUCONAZOLE [Concomitant]
     Indication: ANTIFUNGAL PROPHYLAXIS
     Route: 048
     Dates: start: 20080718, end: 20080829
  19. URSODIOL [Concomitant]
     Indication: CHOLESTASIS
     Route: 048
     Dates: start: 20080814, end: 20080917
  20. ACYCLOVIR [Concomitant]
     Indication: ANTIVIRAL PROPHYLAXIS
     Route: 048
     Dates: start: 20080818, end: 20080917

REACTIONS (6)
  - ACUTE GRAFT VERSUS HOST DISEASE [None]
  - ASPERGILLOSIS [None]
  - CYTOMEGALOVIRUS COLITIS [None]
  - MULTI-ORGAN FAILURE [None]
  - SEPSIS [None]
  - SEPTIC SHOCK [None]
